FAERS Safety Report 23730626 (Version 1)
Quarter: 2024Q2

REPORT INFORMATION
  Report Type: Spontaneous
  Country: US (occurrence: US)
  Receive Date: 20240411
  Receipt Date: 20240411
  Transmission Date: 20240716
  Serious: Yes (Other)
  Sender: FDA-Public Use
  Company Number: US-BAXTER-2024BAX016313

PATIENT
  Age: 42 Year
  Sex: Female

DRUGS (12)
  1. METRONIDAZOLE [Suspect]
     Active Substance: METRONIDAZOLE
     Indication: Trichomoniasis
     Dosage: FIRST DOSE
     Route: 065
  2. CLINDAMYCIN [Suspect]
     Active Substance: CLINDAMYCIN
     Indication: Trichomoniasis
     Dosage: ALTERNATIVE THERAPY
     Route: 065
  3. TINIDAZOLE [Concomitant]
     Active Substance: TINIDAZOLE
     Indication: Trichomoniasis
     Dosage: 3.3 MG (16.67 MG/ML), VOLUME 0.2 ML, CUMULATIVE DOSE 3.3 MG, SUSPENSION
     Route: 048
  4. TINIDAZOLE [Concomitant]
     Active Substance: TINIDAZOLE
     Dosage: 6.7 MG (16.67 MG/ML), VOLUME 0.4 ML, CUMULATIVE DOSE 10 MG, SUSPENSION
     Route: 048
  5. TINIDAZOLE [Concomitant]
     Active Substance: TINIDAZOLE
     Dosage: 10 MG (16.67 MG/ML), VOLUME 0.6 ML, CUMULATIVE DOSE 20 MG, SUSPENSION
     Route: 048
  6. TINIDAZOLE [Concomitant]
     Active Substance: TINIDAZOLE
     Dosage: 33 MG (16.67 MG/ML), VOLUME 2 ML, CUMULATIVE DOSE 53 MG, SUSPENSION
     Route: 048
  7. TINIDAZOLE [Concomitant]
     Active Substance: TINIDAZOLE
     Dosage: 67 MG (16.67 MG/ML), VOLUME 4 ML, CUMULATIVE DOSE 120 MG, SUSPENSION
     Route: 048
  8. TINIDAZOLE [Concomitant]
     Active Substance: TINIDAZOLE
     Dosage: 100 MG (16.67 MG/ML), VOLUME 6 ML, CUMULATIVE DOSE 220 MG, SUSPENSION
     Route: 048
  9. TINIDAZOLE [Concomitant]
     Active Substance: TINIDAZOLE
     Dosage: 250 MG (250 MG/ML), TABLETS, CUMULATIVE DOSE 470 MG
     Route: 048
  10. TINIDAZOLE [Concomitant]
     Active Substance: TINIDAZOLE
     Dosage: 500 MG (500 MG/ML), TABLETS, CUMULATIVE DOSE 970 MG
     Route: 048
  11. TINIDAZOLE [Concomitant]
     Active Substance: TINIDAZOLE
     Dosage: 1000 MG (1000 MG/ML), TABLETS, CUMULATIVE DOSE 1970 MG
     Route: 048
  12. TINIDAZOLE [Concomitant]
     Active Substance: TINIDAZOLE
     Dosage: 500 MG, TWICE DAILY, FOR NEXT 4 DAYS
     Route: 048

REACTIONS (2)
  - Generalised bullous fixed drug eruption [Unknown]
  - Dermatitis bullous [Unknown]
